FAERS Safety Report 13009937 (Version 1)
Quarter: 2016Q4

REPORT INFORMATION
  Report Type: Report from Study
  Country: BR (occurrence: BR)
  Receive Date: 20161208
  Receipt Date: 20161208
  Transmission Date: 20170207
  Serious: Yes (Death, Life-Threatening, Hospitalization, Other)
  Sender: FDA-Public Use
  Company Number: PHHY2016BR142038

PATIENT
  Age: 79 Year
  Sex: Male
  Weight: 66 kg

DRUGS (1)
  1. SANDOSTATIN LAR DEPOT [Suspect]
     Active Substance: OCTREOTIDE ACETATE
     Indication: NEUROENDOCRINE TUMOUR
     Dosage: 20 MG, QMO
     Route: 048
     Dates: start: 20140903

REACTIONS (8)
  - Death [Fatal]
  - Liver disorder [Unknown]
  - Pain [Recovering/Resolving]
  - Weight decreased [Unknown]
  - Diabetes mellitus [Recovering/Resolving]
  - Hepatomegaly [Not Recovered/Not Resolved]
  - General physical health deterioration [Unknown]
  - Incorrect route of drug administration [Unknown]

NARRATIVE: CASE EVENT DATE: 20140903
